FAERS Safety Report 4966460-2 (Version None)
Quarter: 2006Q2

REPORT INFORMATION
  Report Type: 
  Country: None (occurrence: None)
  Receive Date: 20060407
  Receipt Date: 20040514
  Transmission Date: 20061013
  Serious: Yes (Death, Hospitalization)
  Sender: FDA-Public Use
  Company Number: GB-AMGEN-US077520

PATIENT
  Sex: Female

DRUGS (8)
  1. ENBREL [Suspect]
     Indication: RHEUMATOID ARTHRITIS
     Route: 058
     Dates: start: 20030707, end: 20040326
  2. METHOTREXATE [Concomitant]
     Dates: start: 20010101
  3. FOLIC ACID [Concomitant]
     Dates: start: 20010101
  4. PREDNISOLONE [Concomitant]
     Dates: start: 19970101
  5. RALOXIFENE [Concomitant]
  6. RANITIDINE [Concomitant]
     Dates: start: 19970101
  7. DIHYDROCODEINE [Concomitant]
     Dates: start: 20021001
  8. ZOPICLONE [Concomitant]
     Dates: start: 20040610

REACTIONS (4)
  - BREAST CANCER METASTATIC [None]
  - BREAST CANCER STAGE III [None]
  - DEEP VEIN THROMBOSIS [None]
  - METASTASES TO LUNG [None]
